FAERS Safety Report 4833540-1 (Version None)
Quarter: 2005Q4

REPORT INFORMATION
  Report Type: 
  Country: None (occurrence: None)
  Receive Date: 20051117
  Receipt Date: 20051102
  Transmission Date: 20060501
  Serious: Yes (Hospitalization)
  Sender: FDA-Public Use
  Company Number: 2005-BP-19147RO

PATIENT
  Age: 23 Year
  Sex: Female

DRUGS (4)
  1. CYCLOPHOSPHAMIDE [Suspect]
     Indication: LYMPHOMA
     Dosage: SEE TEXT, IV
     Route: 042
  2. PREDNISONE [Suspect]
     Indication: LYMPHOMA
     Dosage: 100 MG , PO
     Route: 048
  3. DOXORUBICIN HCL [Suspect]
     Indication: LYMPHOMA
     Dosage: SEE TEXT, IV
     Route: 042
  4. VINCRISTINE [Suspect]
     Indication: LYMPHOMA
     Dosage: SEE TEXT, IV
     Route: 042

REACTIONS (23)
  - APHASIA [None]
  - BONE MARROW FAILURE [None]
  - CENTRAL NERVOUS SYSTEM LYMPHOMA [None]
  - DEPRESSED LEVEL OF CONSCIOUSNESS [None]
  - DIARRHOEA [None]
  - HAEMATOCHEZIA [None]
  - HAEMATOTOXICITY [None]
  - HYPOCALCAEMIA [None]
  - HYPOKALAEMIA [None]
  - HYPONATRAEMIA [None]
  - HYPOREFLEXIA [None]
  - ILEUS PARALYTIC [None]
  - INCORRECT DRUG ADMINISTRATION DURATION [None]
  - NEUROGENIC BLADDER [None]
  - NEUROPATHY PERIPHERAL [None]
  - NEUTROPENIA [None]
  - OVERDOSE [None]
  - PURPURA [None]
  - PYREXIA [None]
  - QUADRIPARESIS [None]
  - UNRESPONSIVE TO VERBAL STIMULI [None]
  - URINARY INCONTINENCE [None]
  - VISION BLURRED [None]
